FAERS Safety Report 4516380-2 (Version None)
Quarter: 2004Q4

REPORT INFORMATION
  Report Type: 
  Country: None (occurrence: None)
  Receive Date: 20041202
  Receipt Date: 20040916
  Transmission Date: 20050328
  Serious: Yes (Other)
  Sender: FDA-Public Use
  Company Number: US-GLAXOSMITHKLINE-A0526016A

PATIENT
  Age: 1 Year
  Sex: Female

DRUGS (2)
  1. AUGMENTIN ES-600 [Suspect]
     Indication: SINUSITIS
     Dosage: .5TSP TWICE PER DAY
     Route: 048
     Dates: start: 20040827, end: 20040904
  2. NO CONCURRENT MEDICATION [Concomitant]

REACTIONS (3)
  - ANGIONEUROTIC OEDEMA [None]
  - RASH GENERALISED [None]
  - SERUM SICKNESS [None]
